FAERS Safety Report 9605115 (Version 1)
Quarter: 2013Q4

REPORT INFORMATION
  Report Type: Spontaneous
  Country: IT (occurrence: IT)
  Receive Date: 20131008
  Receipt Date: 20131008
  Transmission Date: 20140711
  Serious: Yes (Other)
  Sender: FDA-Public Use
  Company Number: IT-TEVA-435249ISR

PATIENT
  Age: 36 Year
  Sex: Female

DRUGS (4)
  1. PROVIGIL 100MG [Suspect]
     Indication: NARCOLEPSY
     Dosage: 1 DOSAGE FORMS DAILY;
     Route: 048
     Dates: start: 20120101, end: 20120614
  2. GARDENALE 100MG [Suspect]
     Indication: EPILEPSY
     Dosage: 1 DOSAGE FORMS DAILY;
     Route: 048
     Dates: start: 20110101
  3. LAMICTAL 25MG [Suspect]
     Indication: EPILEPSY
     Dosage: 1 DOSAGE FORMS DAILY;
     Route: 048
     Dates: start: 20110101, end: 20120614
  4. SOLDESAM 0.2% [Concomitant]
     Dosage: 64 GTT DAILY;
     Route: 048
     Dates: start: 20120101, end: 20120524

REACTIONS (1)
  - Pancytopenia [Recovering/Resolving]
